FAERS Safety Report 4635712-8 (Version None)
Quarter: 2005Q3

REPORT INFORMATION
  Report Type: 
  Country: None (occurrence: None)
  Receive Date: 20050414
  Receipt Date: 20050407
  Transmission Date: 20060218
  Serious: Yes (Life-Threatening)
  Sender: FDA-Public Use
  Company Number: 2005PK00566

PATIENT
  Age: 30 Year
  Sex: Female

DRUGS (30)
  1. NEXIUM [Suspect]
     Indication: GASTROOESOPHAGEAL REFLUX DISEASE
     Dosage: 20 MG DAILY PO
     Route: 048
     Dates: end: 20040308
  2. NEXIUM [Suspect]
     Indication: GASTROOESOPHAGEAL REFLUX DISEASE
     Dosage: 20 MG DAILY PO
     Route: 048
     Dates: start: 20040401, end: 20050308
  3. CAMPATH [Suspect]
     Indication: TRANSPLANT REJECTION
     Dosage: 3 MG DAILY IV
     Route: 042
     Dates: start: 20050210
  4. CAMPATH [Suspect]
     Indication: TRANSPLANT REJECTION
     Dosage: 10 MG DAILY IV
     Route: 042
     Dates: start: 20050211, end: 20050213
  5. CAMPATH [Suspect]
     Indication: TRANSPLANT REJECTION
     Dosage: 30 MG DAILY IV
     Route: 042
     Dates: start: 20050214
  6. CAMPATH [Suspect]
     Indication: TRANSPLANT REJECTION
     Dosage: 20 MG DAILY IV
     Route: 042
     Dates: start: 20050215
  7. BACTRIM [Suspect]
     Indication: PROPHYLACTIC CHEMOTHERAPY
     Dosage: 1 DF DAILY PO
     Route: 048
     Dates: start: 20040101, end: 20040308
  8. BACTRIM [Suspect]
     Indication: PROPHYLACTIC CHEMOTHERAPY
     Dosage: 1 DF DAILY PO
     Route: 048
     Dates: start: 20040701, end: 20050308
  9. VALCYTE [Suspect]
     Indication: PROPHYLACTIC CHEMOTHERAPY
     Dosage: 450 MG DAILY PO
     Route: 048
     Dates: start: 20040101, end: 20040301
  10. VALCYTE [Suspect]
     Indication: PROPHYLACTIC CHEMOTHERAPY
     Dosage: 450 MG DAILY PO
     Route: 048
     Dates: start: 20040401
  11. VALCYTE [Suspect]
     Indication: PROPHYLACTIC CHEMOTHERAPY
     Dosage: 450 MG DAILY PO
     Route: 048
     Dates: start: 20040701
  12. VALCYTE [Suspect]
     Indication: PROPHYLACTIC CHEMOTHERAPY
     Dosage: 450 MG DAILY PO
     Route: 048
     Dates: start: 20050101, end: 20050308
  13. CELLCEPT [Suspect]
     Indication: TRANSPLANT REJECTION
     Dosage: 1 G DAILY PO
     Route: 048
     Dates: start: 20040108, end: 20040301
  14. CELLCEPT [Suspect]
     Indication: TRANSPLANT REJECTION
     Dosage: 1 G DAILY PO
     Route: 048
     Dates: end: 20050310
  15. PROGRAF [Suspect]
     Indication: TRANSPLANT REJECTION
     Dosage: 1 MG DAILY PO
     Route: 048
     Dates: start: 20040108, end: 20050310
  16. PREDNISONE [Concomitant]
  17. CALCIMAGON-D3 [Concomitant]
  18. EPHYNAL [Concomitant]
  19. VITAMIN A+D+E+K [Concomitant]
  20. VI-DE 3 [Concomitant]
  21. CREON [Concomitant]
  22. ACTONEL [Concomitant]
  23. URSO FALK [Concomitant]
  24. NASONEX [Concomitant]
  25. SPORANOX G [Concomitant]
  26. INSULATARD HM [Concomitant]
  27. INSULIN ACTRAPID [Concomitant]
  28. MOTILIUM [Concomitant]
  29. DAFALGAN [Concomitant]
  30. ULCOGANT [Concomitant]

REACTIONS (2)
  - ABDOMINAL PAIN [None]
  - BONE MARROW DEPRESSION [None]
